FAERS Safety Report 8853944 (Version 2)
Quarter: 2013Q1

REPORT INFORMATION
  Report Type: Spontaneous
  Country: BR (occurrence: BR)
  Receive Date: 20121022
  Receipt Date: 20130220
  Transmission Date: 20140127
  Serious: Yes (Other)
  Sender: FDA-Public Use
  Company Number: PHHY2010BR52438

PATIENT
  Sex: Female

DRUGS (7)
  1. DIOVAN HCT [Suspect]
     Indication: HYPERTENSION
     Dosage: 1 TABLET DAILY (160 MG OF VALS/12.5 MG OF HYDRO)
     Route: 048
  2. SERETIDE [Concomitant]
  3. AMIODARONE [Concomitant]
     Indication: ARRHYTHMIA
     Dosage: 200 MG, DAILY
     Route: 048
  4. ONBREZ [Concomitant]
     Indication: ASTHMA
     Dosage: 150 UG, DAILY
     Dates: start: 201210
  5. AMLODIPINE BESILATE [Concomitant]
     Indication: HYPERTENSION
     Dosage: 5 MG, DAILY
     Route: 048
  6. HYDROCHLOROTHIAZIDE [Concomitant]
     Indication: HYPERTENSION
     Dosage: 25 MG, DAILY
     Route: 048
  7. RIVOTRIL [Concomitant]
     Indication: SLEEP DISORDER
     Dosage: 2 MG, DAILY
     Route: 048

REACTIONS (5)
  - Emphysema [Recovering/Resolving]
  - Depression [Recovering/Resolving]
  - Fatigue [Recovering/Resolving]
  - Hypertension [Recovering/Resolving]
  - Drug prescribing error [Unknown]
